FAERS Safety Report 9402389 (Version 1)
Quarter: 2013Q3

REPORT INFORMATION
  Report Type: Spontaneous
  Country: SE (occurrence: SE)
  Receive Date: 20130716
  Receipt Date: 20130716
  Transmission Date: 20140515
  Serious: Yes (Other)
  Sender: FDA-Public Use
  Company Number: SE-PFIZER INC-2013203442

PATIENT
  Age: 73 Year
  Sex: Female

DRUGS (1)
  1. TOVIAZ [Suspect]
     Dosage: 4 MG, 1X/DAY
     Dates: start: 201306

REACTIONS (5)
  - Urinary retention [Not Recovered/Not Resolved]
  - Dizziness [Unknown]
  - Palpitations [Unknown]
  - Hypotension [Unknown]
  - Eructation [Unknown]
